FAERS Safety Report 4937189-1 (Version None)
Quarter: 2006Q1

REPORT INFORMATION
  Report Type: 
  Country: None (occurrence: None)
  Receive Date: 20060307
  Receipt Date: 20060307
  Transmission Date: 20060701
  Serious: No
  Sender: FDA-Public Use
  Company Number: None

PATIENT
  Sex: Female
  Weight: 70.7611 kg

DRUGS (7)
  1. FENTANYL [Suspect]
     Indication: BACK DISORDER
     Dosage: 1 PTCH  100MCG/HR  EV 48 HOURS  TRANSDERMAL  061
     Route: 062
     Dates: start: 20050914, end: 20051114
  2. FENTANYL [Suspect]
     Indication: SURGERY
     Dosage: 1 PTCH  100MCG/HR  EV 48 HOURS  TRANSDERMAL  061
     Route: 062
     Dates: start: 20050914, end: 20051114
  3. DILAUDID [Concomitant]
  4. PREVACID (PREVACID) [Concomitant]
  5. TRANZADONE [Concomitant]
  6. LOVISTATIN [Concomitant]
  7. LEXAPRO [Concomitant]

REACTIONS (4)
  - DRUG INEFFECTIVE [None]
  - ECONOMIC PROBLEM [None]
  - PHARMACEUTICAL PRODUCT COMPLAINT [None]
  - THERAPEUTIC RESPONSE UNEXPECTED WITH DRUG SUBSTITUTION [None]
